FAERS Safety Report 12904652 (Version 2)
Quarter: 2016Q4

REPORT INFORMATION
  Report Type: Report from Study
  Country: CO (occurrence: CO)
  Receive Date: 20161102
  Receipt Date: 20161202
  Transmission Date: 20170207
  Serious: Yes (Death, Hospitalization)
  Sender: FDA-Public Use
  Company Number: CO-INCYTE CORPORATION-2016IN006859

PATIENT
  Age: 65 Year
  Sex: Female

DRUGS (3)
  1. JAKAVI [Suspect]
     Active Substance: RUXOLITINIB
     Indication: MYELOFIBROSIS
     Dosage: 20 MG, BID
     Route: 048
     Dates: start: 20161018
  2. INSULIN [Concomitant]
     Active Substance: INSULIN NOS
     Route: 065
  3. INSULIN [Concomitant]
     Active Substance: INSULIN NOS
     Indication: PRODUCT USED FOR UNKNOWN INDICATION
     Route: 065

REACTIONS (3)
  - Arthralgia [Unknown]
  - Death [Fatal]
  - Hypokinesia [Unknown]

NARRATIVE: CASE EVENT DATE: 201610
